FAERS Safety Report 8602363 (Version 3)
Quarter: 2013Q2

REPORT INFORMATION
  Report Type: Spontaneous
  Country: FR (occurrence: None)
  Receive Date: 20120525
  Receipt Date: 20130614
  Transmission Date: 20140414
  Serious: Yes (Death, Hospitalization)
  Sender: FDA-Public Use
  Company Number: AXC-2012-000238

PATIENT
  Age: 81 Year
  Sex: Female

DRUGS (8)
  1. SUCRALFATE [Suspect]
     Indication: PRODUCT USED FOR UNKNOWN INDICATION
     Dosage: 2 G, QD, ORAL
     Route: 048
  2. LEVOFLOXACIN [Suspect]
     Indication: ABSCESS INTESTINAL
     Dosage: 500 MG, QD, ORAL
     Route: 048
     Dates: start: 20120224, end: 20120406
  3. FLAGYL [Suspect]
     Indication: ABSCESS INTESTINAL
     Dosage: 500 MG, TID, ORAL
     Route: 048
     Dates: start: 20120224, end: 20120406
  4. MIANSERIN HYDROCHLORIDE [Suspect]
     Indication: PRODUCT USED FOR UNKNOWN INDICATION
     Dosage: 10 MG, QD, ORAL
     Route: 048
     Dates: end: 20120418
  5. ALPRAZOLAM [Suspect]
     Indication: PRODUCT USED FOR UNKNOWN INDICATION
     Dosage: 0.5 MG, QD, ORAL
     Route: 048
  6. SOTALOL HYDROCHLORIDE [Suspect]
     Indication: PRODUCT USED FOR UNKNOWN INDICATION
     Dosage: 160 MG, QD, ORAL
     Route: 048
  7. MOTILIUM /00498201/ (DOMPERIDONE) [Concomitant]
  8. NITROGLYCERIN [Concomitant]

REACTIONS (8)
  - Blindness cortical [None]
  - Confusional state [None]
  - Abnormal behaviour [None]
  - Metabolic encephalopathy [None]
  - Gastrointestinal perforation [None]
  - Diet refusal [None]
  - Axonal neuropathy [None]
  - Speech disorder [None]
